FAERS Safety Report 24461000 (Version 1)
Quarter: 2024Q4

REPORT INFORMATION
  Report Type: Report from Study
  Country: US (occurrence: US)
  Receive Date: 20241018
  Receipt Date: 20241018
  Transmission Date: 20250114
  Serious: No
  Sender: ROCHE
  Company Number: US-ROCHE-3574545

PATIENT
  Age: 80 Year
  Sex: Male

DRUGS (6)
  1. RITUXAN [Suspect]
     Active Substance: RITUXIMAB
     Indication: Granulomatosis with polyangiitis
     Route: 041
  2. RITUXAN [Suspect]
     Active Substance: RITUXIMAB
     Indication: Chronic kidney disease
  3. RITUXAN [Suspect]
     Active Substance: RITUXIMAB
     Indication: Atrial fibrillation
  4. APIXABAN [Concomitant]
     Active Substance: APIXABAN
     Dosage: TAKE 1 TABLET (2.5 MG TOTAL) BY MOUTH TWO TIMES A DAY
  5. GLIPIZIDE [Concomitant]
     Active Substance: GLIPIZIDE
     Dosage: TAKE 1 TABLET (5 MG TOTAL) BY MOUTH TWO TIMES A DAY
  6. OMEGA-3-ACID ETHYL ESTERS [Concomitant]
     Active Substance: OMEGA-3-ACID ETHYL ESTERS
     Dosage: TAKE 2 CAPSULES (2 G TOTAL) BY MOUTH 2 TIMES A DAY

REACTIONS (2)
  - Off label use [Unknown]
  - No adverse event [Unknown]
